FAERS Safety Report 22225092 (Version 3)
Quarter: 2023Q2

REPORT INFORMATION
  Report Type: Report from Study
  Country: CA (occurrence: CA)
  Receive Date: 20230418
  Receipt Date: 20230517
  Transmission Date: 20230722
  Serious: Yes (Hospitalization)
  Sender: FDA-Public Use
  Company Number: CA-BAUSCH-BL-2023-006049

PATIENT
  Age: 40 Year
  Sex: Female
  Weight: 108.96 kg

DRUGS (6)
  1. WELLBUTRIN [Suspect]
     Active Substance: BUPROPION HYDROCHLORIDE
     Indication: Product used for unknown indication
     Route: 065
     Dates: end: 2008
  2. CONTRAVE [Suspect]
     Active Substance: BUPROPION HYDROCHLORIDE\NALTREXONE HYDROCHLORIDE
     Indication: Weight control
     Dosage: 90/8 MG
     Route: 048
  3. VARENICLINE TARTRATE [Suspect]
     Active Substance: VARENICLINE TARTRATE
     Indication: Product used for unknown indication
     Route: 065
  4. SAXENDA [Concomitant]
     Active Substance: LIRAGLUTIDE
     Indication: Weight decreased
  5. SYMBICORT [Concomitant]
     Active Substance: BUDESONIDE\FORMOTEROL FUMARATE DIHYDRATE
     Indication: Asthma
  6. ATIVAN [Concomitant]
     Active Substance: LORAZEPAM
     Indication: Anxiety

REACTIONS (2)
  - Unevaluable event [Unknown]
  - Product prescribing error [Unknown]
